FAERS Safety Report 24383790 (Version 1)
Quarter: 2024Q4

REPORT INFORMATION
  Report Type: Spontaneous
  Country: BE (occurrence: BE)
  Receive Date: 20241001
  Receipt Date: 20241001
  Transmission Date: 20250115
  Serious: Yes (Other)
  Sender: JOHNSON AND JOHNSON
  Company Number: BE-JNJFOC-20240957602

PATIENT
  Sex: Female

DRUGS (1)
  1. TALVEY [Suspect]
     Active Substance: TALQUETAMAB-TGVS
     Indication: Plasma cell myeloma
     Route: 065
     Dates: start: 202404

REACTIONS (5)
  - Hypogammaglobulinaemia [Unknown]
  - Nail dystrophy [Unknown]
  - Infection susceptibility increased [Unknown]
  - Palmar erythema [Recovering/Resolving]
  - Dysgeusia [Unknown]
